FAERS Safety Report 9171385 (Version 1)
Quarter: 2013Q1

REPORT INFORMATION
  Report Type: Spontaneous
  Country: CA (occurrence: None)
  Receive Date: 20130313
  Receipt Date: 20130313
  Transmission Date: 20140127
  Serious: No
  Sender: FDA-Public Use
  Company Number: AECAN201200206

PATIENT
  Age: 50 Year
  Sex: Male

DRUGS (4)
  1. PROLASTIN-C [Suspect]
     Indication: ALPHA-1 ANTI-TRYPSIN DEFICIENCY
     Route: 042
     Dates: start: 20120330
  2. FLUTICASONE W/SALMETEROL [Concomitant]
  3. SPIRIVA [Concomitant]
  4. VENTOLIN/00139501 [Concomitant]

REACTIONS (3)
  - Dizziness [None]
  - Pneumonia [None]
  - Influenza like illness [None]
